FAERS Safety Report 9516488 (Version 2)
Quarter: 2014Q3

REPORT INFORMATION
  Report Type: Spontaneous
  Country: CA (occurrence: CA)
  Receive Date: 20130911
  Receipt Date: 20140709
  Transmission Date: 20150326
  Serious: Yes (Disabling, Other)
  Sender: FDA-Public Use
  Company Number: CA-BAYER-2013-109371

PATIENT
  Sex: Female

DRUGS (3)
  1. BETASERON [Suspect]
     Active Substance: INTERFERON BETA-1B
     Indication: RELAPSING-REMITTING MULTIPLE SCLEROSIS
     Dosage: UNK
     Dates: start: 2010
  2. BETASERON [Suspect]
     Active Substance: INTERFERON BETA-1B
     Indication: RELAPSING-REMITTING MULTIPLE SCLEROSIS
     Dosage: 8 MIU, UNK
     Route: 058
     Dates: start: 1998, end: 200607
  3. BETASERON [Suspect]
     Active Substance: INTERFERON BETA-1B
     Indication: RELAPSING-REMITTING MULTIPLE SCLEROSIS
     Dosage: UNK
     Dates: start: 200810

REACTIONS (9)
  - Treatment failure [None]
  - Multiple sclerosis relapse [None]
  - Cerebrovascular insufficiency [None]
  - Gait disturbance [None]
  - Chills [None]
  - Multiple sclerosis relapse [None]
  - Mobility decreased [None]
  - Injection site reaction [None]
  - Influenza like illness [None]

NARRATIVE: CASE EVENT DATE: 2008
